FAERS Safety Report 8136185-3 (Version None)
Quarter: 2012Q1

REPORT INFORMATION
  Report Type: 
  Country: None (occurrence: None)
  Receive Date: 20120214
  Receipt Date: 20120206
  Transmission Date: 20120608
  Serious: Yes (Hospitalization)
  Sender: FDA-Public Use
  Company Number: US-JNJFOC-20110304948

PATIENT
  Sex: Male
  Weight: 110.68 kg

DRUGS (9)
  1. DILANTIN [Concomitant]
     Indication: ARTERIOVENOUS MALFORMATION
     Dates: start: 19790101
  2. MIRTAZAPINE [Concomitant]
     Indication: POST-TRAUMATIC STRESS DISORDER
     Dates: start: 20040101
  3. CALCIUM [Concomitant]
     Indication: MEDICAL DIET
     Dates: start: 20070101
  4. EXTRA STRENGTH TYLENOL [Suspect]
     Indication: MUSCULOSKELETAL PAIN
     Dosage: ^TWO TABLETS EVERY FOUR TO FIVE YEARS^
     Route: 048
     Dates: end: 20110108
  5. CARVEDILOL [Concomitant]
     Indication: CARDIAC DISORDER
  6. ALPRAZOLAM [Concomitant]
     Indication: POST-TRAUMATIC STRESS DISORDER
  7. FUROSEMIDE [Concomitant]
     Indication: PERICARDIAL EFFUSION
     Dates: start: 20100101
  8. DILTIAZEM HCL [Concomitant]
     Indication: CARDIAC DISORDER
  9. EXTRA STRENGTH TYLENOL [Suspect]
     Indication: BACK PAIN
     Dosage: ^TWO TABLETS EVERY FOUR TO FIVE YEARS^
     Route: 048
     Dates: end: 20110108

REACTIONS (5)
  - PRODUCT QUALITY ISSUE [None]
  - CARDIAC FAILURE CONGESTIVE [None]
  - ABDOMINAL DISTENSION [None]
  - ACUTE RESPIRATORY FAILURE [None]
  - ATRIAL FIBRILLATION [None]
